FAERS Safety Report 25915968 (Version 5)
Quarter: 2025Q4

REPORT INFORMATION
  Report Type: Spontaneous
  Country: US (occurrence: US)
  Receive Date: 20251013
  Receipt Date: 20251217
  Transmission Date: 20260118
  Serious: Yes (Other)
  Sender: SANOFI AVENTIS
  Company Number: US-SA-2025SA303493

PATIENT
  Sex: Female

DRUGS (1)
  1. DUPIXENT [Suspect]
     Active Substance: DUPILUMAB
     Indication: Neurodermatitis
     Dosage: UNK

REACTIONS (9)
  - Autoimmune thyroiditis [Unknown]
  - Condition aggravated [Unknown]
  - Brain fog [Recovering/Resolving]
  - Rash macular [Unknown]
  - Blood thyroid stimulating hormone increased [Unknown]
  - Acne [Recovering/Resolving]
  - Skin ulcer [Recovering/Resolving]
  - Pruritus [Unknown]
  - Injection site pain [Unknown]

NARRATIVE: CASE EVENT DATE: 20250101
